FAERS Safety Report 5259453-1 (Version None)
Quarter: 2007Q1

REPORT INFORMATION
  Report Type: 
  Country: None (occurrence: None)
  Receive Date: 20070305
  Receipt Date: 20070222
  Transmission Date: 20070707
  Serious: Yes (Hospitalization)
  Sender: FDA-Public Use
  Company Number: 231384K07USA

PATIENT
  Age: 49 Year
  Sex: Female

DRUGS (7)
  1. REBIF [Suspect]
     Indication: MULTIPLE SCLEROSIS
     Dosage: 44 MCG, 3 IN 1 WEEKS, SUBCUTANEOUS
     Route: 058
     Dates: start: 20031227
  2. MELOXICAM [Concomitant]
  3. TIZANIDINE HCL [Concomitant]
  4. GABAPENTIN [Concomitant]
  5. CYMBALTA [Concomitant]
  6. NARCOTIC PILLS (ALL OTHER THERAPEUTIC PRODUCTS) [Concomitant]
  7. MORPHINE PATCH (MORPHINE /00036301/) [Concomitant]

REACTIONS (6)
  - ARTERIOSCLEROSIS [None]
  - BLOOD DISORDER [None]
  - INFECTION [None]
  - PAIN [None]
  - RAYNAUD'S PHENOMENON [None]
  - URINARY TRACT INFECTION [None]
